FAERS Safety Report 17518122 (Version 4)
Quarter: 2020Q2

REPORT INFORMATION
  Report Type: Spontaneous
  Country: PL (occurrence: PL)
  Receive Date: 20200309
  Receipt Date: 20200513
  Transmission Date: 20200713
  Serious: Yes (Other)
  Sender: FDA-Public Use
  Company Number: PL-MYLANLABS-2020M1024020

PATIENT
  Age: 25 Year
  Sex: Female

DRUGS (16)
  1. NORELGESTROMIN [Concomitant]
     Active Substance: NORELGESTROMIN
     Indication: HORMONE REPLACEMENT THERAPY
     Dosage: UNK
  2. VALPROIC ACID. [Suspect]
     Active Substance: VALPROIC ACID
     Indication: PARTIAL SEIZURES
     Dosage: UNK
     Route: 065
  3. LEVETIRACETAM. [Suspect]
     Active Substance: LEVETIRACETAM
     Indication: PARTIAL SEIZURES
     Dosage: 3 GRAM, QD
     Route: 065
  4. TIAGABINE [Suspect]
     Active Substance: TIAGABINE
     Indication: PARTIAL SEIZURES
     Dosage: DOSES INCREASING TO 20 MG DAILY
     Route: 065
  5. TIAGABINE [Suspect]
     Active Substance: TIAGABINE
     Indication: EPILEPSY
  6. OXCARBAZEPINE. [Suspect]
     Active Substance: OXCARBAZEPINE
     Indication: PRODUCT USED FOR UNKNOWN INDICATION
     Dosage: UNK
     Route: 065
  7. ETHINYLESTRADIOL W/NORELGESTROMIN [Suspect]
     Active Substance: ETHINYL ESTRADIOL\NORELGESTROMIN
     Indication: AMENORRHOEA
     Dosage: UNK
  8. NORELGESTROMIN [Concomitant]
     Active Substance: NORELGESTROMIN
     Indication: AMENORRHOEA
  9. METFORMIN [Concomitant]
     Active Substance: METFORMIN HYDROCHLORIDE
     Indication: INSULIN RESISTANCE
     Dosage: UNK
  10. LACOSAMIDE. [Suspect]
     Active Substance: LACOSAMIDE
     Indication: EPILEPSY
     Dosage: DOSES GRADUALLY INCREASING TO 400 MG PER DAY
     Route: 065
  11. ETHINYLESTRADIOL W/NORELGESTROMIN [Suspect]
     Active Substance: ETHINYL ESTRADIOL\NORELGESTROMIN
     Indication: HORMONE REPLACEMENT THERAPY
     Dosage: UNK
  12. VALPROIC ACID. [Suspect]
     Active Substance: VALPROIC ACID
     Indication: SEIZURE
  13. LAMOTRIGINE. [Concomitant]
     Active Substance: LAMOTRIGINE
     Indication: SEIZURE
     Dosage: GRADUALLY INCREASING DOSES UP TO 250 MG PER DAY
     Route: 065
  14. TOPIRAMATE. [Suspect]
     Active Substance: TOPIRAMATE
     Indication: SEIZURE
  15. LAMOTRIGINE. [Concomitant]
     Active Substance: LAMOTRIGINE
     Indication: PARTIAL SEIZURES
     Dosage: 300 MILLIGRAM, QD
     Route: 065
  16. TOPIRAMATE. [Suspect]
     Active Substance: TOPIRAMATE
     Indication: PARTIAL SEIZURES
     Dosage: UNK
     Route: 048

REACTIONS (8)
  - Drug ineffective [Recovered/Resolved]
  - Seizure [Recovering/Resolving]
  - Educational problem [Recovered/Resolved]
  - Off label use [Unknown]
  - Dizziness [Unknown]
  - Disturbance in attention [Recovered/Resolved]
  - Learning disorder [Unknown]
  - Product use in unapproved indication [Unknown]
